FAERS Safety Report 8009219-4 (Version None)
Quarter: 2011Q4

REPORT INFORMATION
  Report Type: 
  Country: None (occurrence: None)
  Receive Date: 20111227
  Receipt Date: 20111218
  Transmission Date: 20120403
  Serious: Yes (Other)
  Sender: FDA-Public Use
  Company Number: FR-ASTRAZENECA-2011SE59220

PATIENT
  Age: 14786 Day
  Sex: Female
  Weight: 59 kg

DRUGS (4)
  1. ZOLMITRIPTAN [Suspect]
     Indication: MIGRAINE
     Route: 048
     Dates: start: 20110825, end: 20110825
  2. ZOLMITRIPTAN [Suspect]
     Route: 048
     Dates: start: 20110825, end: 20110825
  3. RELPAX [Concomitant]
     Indication: MIGRAINE
  4. ACETAMINOPHEN [Concomitant]
     Indication: MIGRAINE
     Route: 048

REACTIONS (4)
  - DYSPHAGIA [None]
  - PALATAL OEDEMA [None]
  - ASTHENIA [None]
  - TONGUE OEDEMA [None]
